FAERS Safety Report 8502360-9 (Version None)
Quarter: 2012Q3

REPORT INFORMATION
  Report Type: 
  Country: None (occurrence: None)
  Receive Date: 20120711
  Receipt Date: 20120702
  Transmission Date: 20120928
  Serious: No
  Sender: FDA-Public Use
  Company Number: US-BAYER-2012-066587

PATIENT
  Sex: Female

DRUGS (1)
  1. CLIMARA [Suspect]
     Dosage: 0.1 MG, UNK
     Dates: start: 20050101

REACTIONS (4)
  - AGITATION [None]
  - FATIGUE [None]
  - FEELING JITTERY [None]
  - HEADACHE [None]
